FAERS Safety Report 6522785-0 (Version None)
Quarter: 2009Q4

REPORT INFORMATION
  Report Type: 
  Country: None (occurrence: None)
  Receive Date: 20091230
  Receipt Date: 20091218
  Transmission Date: 20100525
  Serious: Yes (Congenital Anomaly, Other)
  Sender: FDA-Public Use
  Company Number: US-PFIZER INC-2009312470

PATIENT
  Age: 20 Week

DRUGS (3)
  1. DILANTIN-125 [Suspect]
     Indication: EPILEPSY
     Dosage: 500 MG, UNK
     Route: 064
  2. TEGRETOL [Suspect]
     Indication: EPILEPSY
     Dosage: 1000 MG, UNK
     Route: 064
  3. TOPAMAX [Suspect]
     Indication: EPILEPSY
     Dosage: UNK
     Route: 064

REACTIONS (3)
  - DRUG EXPOSURE DURING PREGNANCY [None]
  - FOETAL GROWTH RETARDATION [None]
  - MULTIPLE CONGENITAL ABNORMALITIES [None]
